FAERS Safety Report 8771986 (Version 3)
Quarter: 2012Q4

REPORT INFORMATION
  Report Type: 
  Country: US (occurrence: US)
  Receive Date: 20120905
  Receipt Date: 20121018
  Transmission Date: 20130627
  Serious: Yes (Death, Other)
  Sender: FDA-Public Use
  Company Number: PHEH2012US017256

PATIENT
  Age: 68 Year
  Sex: Male
  Weight: 117 kg

DRUGS (1)
  1. EXJADE [Suspect]
     Indication: APLASTIC ANAEMIA
     Dosage: 2500 mg, QD
     Route: 048
     Dates: start: 201201, end: 201208

REACTIONS (3)
  - Aplastic anaemia [Fatal]
  - Sepsis [Unknown]
  - Myocardial infarction [Unknown]
